FAERS Safety Report 5108549-3 (Version None)
Quarter: 2006Q3

REPORT INFORMATION
  Report Type: 
  Country: None (occurrence: None)
  Receive Date: 20060911
  Receipt Date: 20060825
  Transmission Date: 20061208
  Serious: Yes (Other)
  Sender: FDA-Public Use
  Company Number: GAM-112-06-B

PATIENT
  Sex: 0

DRUGS (2)
  1. OCTAGAM [Suspect]
  2. ACCU-CHEK SENSOR COMFORT TEST STRIPS (BLOOD GLUCOSE MONITORING TEST ST [Suspect]

REACTIONS (2)
  - BLOOD GLUCOSE FALSE POSITIVE [None]
  - DEVICE MALFUNCTION [None]
